FAERS Safety Report 6153943-5 (Version None)
Quarter: 2009Q2

REPORT INFORMATION
  Report Type: 
  Country: None (occurrence: None)
  Receive Date: 20090410
  Receipt Date: 20090326
  Transmission Date: 20091009
  Serious: Yes (Hospitalization, Other)
  Sender: FDA-Public Use
  Company Number: 20090096

PATIENT
  Age: 65 Year
  Sex: Female
  Weight: 86.1 kg

DRUGS (25)
  1. VENOFER [Suspect]
     Indication: IRON DEFICIENCY ANAEMIA
     Dosage: 200MG/DAY X 3 DAYS, INTRAVENOUS
     Route: 042
     Dates: start: 20090323, end: 20090325
  2. PROPOFOL [Suspect]
     Indication: ANAESTHESIA
     Dosage: INTRAVENOUS; ROUTE: DRIP
     Route: 041
     Dates: start: 20090325, end: 20090325
  3. MORPHINE [Concomitant]
  4. PROPOXYPHENE HCL CAP [Concomitant]
  5. HEP FLUSH [Concomitant]
  6. ROCEPHIN [Concomitant]
  7. PANTOPRAZOLE SODIUM [Concomitant]
  8. ALBUTEROL [Concomitant]
  9. CALCIUM CARBONATE [Concomitant]
  10. DOXYCYCLINE [Concomitant]
  11. ZOLPIDEM [Concomitant]
  12. ASPIRIN [Concomitant]
  13. FOLIC ACID [Concomitant]
  14. PREDNISONE [Concomitant]
  15. DILTIAZEM [Concomitant]
  16. EPTIFIBATIDE [Concomitant]
  17. DIGOXIN [Concomitant]
  18. LEVOTHRYROXINE [Concomitant]
  19. EPOETIN ALFA [Concomitant]
  20. AMIODARONE HCL [Concomitant]
  21. ALENDRONATE SODIUM [Concomitant]
  22. BUPIVACAINE [Concomitant]
  23. CLINDAMYCIN HCL [Concomitant]
  24. NEOSTIGMINE METHYLSULFATE INJECTION, USP (0033-10) (NEOSTIGMINE) [Concomitant]
  25. SUCCINYLCHOLINE [Concomitant]

REACTIONS (2)
  - CATHETER RELATED COMPLICATION [None]
  - PLEURAL EFFUSION [None]
